FAERS Safety Report 8414972-1 (Version None)
Quarter: 2012Q2

REPORT INFORMATION
  Report Type: 
  Country: None (occurrence: None)
  Receive Date: 20120606
  Receipt Date: 20120528
  Transmission Date: 20120825
  Serious: Yes (Other)
  Sender: FDA-Public Use
  Company Number: JP-VERTEX PHARMACEUTICALS INC.-AE-2012-004719

PATIENT
  Age: 56 Year
  Sex: Male

DRUGS (10)
  1. REBETOL [Concomitant]
     Route: 048
     Dates: start: 20120322
  2. DEPAS [Concomitant]
     Route: 048
     Dates: start: 20120315
  3. TELAVIC (TELAPREVIR) [Suspect]
     Route: 048
     Dates: start: 20120315
  4. PEG-INTRON [Concomitant]
     Indication: HEPATITIS C
     Route: 051
     Dates: start: 20120202
  5. REBETOL [Concomitant]
     Route: 048
     Dates: start: 20120308, end: 20120321
  6. EPADEL S [Concomitant]
     Route: 048
     Dates: start: 20120202
  7. TELAVIC (TELAPREVIR) [Suspect]
     Indication: HEPATITIS C
     Route: 048
     Dates: start: 20120202, end: 20120314
  8. REBETOL [Concomitant]
     Indication: HEPATITIS C
     Route: 048
     Dates: start: 20120202, end: 20120307
  9. LOXONIN [Concomitant]
     Route: 048
     Dates: start: 20120315
  10. FAMOTIDINE [Concomitant]
     Route: 048
     Dates: start: 20120315

REACTIONS (1)
  - ERYTHEMA MULTIFORME [None]
